FAERS Safety Report 13272653 (Version 1)
Quarter: 2017Q1

REPORT INFORMATION
  Report Type: Spontaneous
  Country: US (occurrence: US)
  Receive Date: 20170225
  Receipt Date: 20170225
  Transmission Date: 20170428
  Serious: Yes (Other)
  Sender: FDA-Public Use
  Company Number: None

PATIENT
  Age: 65 Year
  Sex: Female
  Weight: 83.25 kg

DRUGS (11)
  1. BIOTIN [Concomitant]
     Active Substance: BIOTIN
  2. COD-LIVER OIL [Concomitant]
     Active Substance: FISH OIL
  3. COSOPT [Concomitant]
     Active Substance: DORZOLAMIDE HYDROCHLORIDE\TIMOLOL MALEATE
  4. SYNTHROID [Concomitant]
     Active Substance: LEVOTHYROXINE SODIUM
  5. MULTIVITAMIN [Concomitant]
     Active Substance: VITAMINS
  6. BABY ASPIRIN [Concomitant]
     Active Substance: ASPIRIN
  7. BENICAR HCT [Concomitant]
     Active Substance: HYDROCHLOROTHIAZIDE\OLMESARTAN MEDOXOMIL
  8. VIVELLE DOT PATCH [Concomitant]
  9. CARBATROL [Suspect]
     Active Substance: CARBAMAZEPINE
     Indication: SEIZURE
     Dosage: ?          QUANTITY:2 CAPSULE(S);?
     Route: 048
  10. ALPHAGAN P [Concomitant]
     Active Substance: BRIMONIDINE TARTRATE
  11. VITAMIN D3 [Concomitant]
     Active Substance: CHOLECALCIFEROL

REACTIONS (2)
  - Weight increased [None]
  - Lupus-like syndrome [None]

NARRATIVE: CASE EVENT DATE: 20160808
